FAERS Safety Report 16982445 (Version 2)
Quarter: 2019Q4

REPORT INFORMATION
  Report Type: Spontaneous
  Country: HU (occurrence: HU)
  Receive Date: 20191101
  Receipt Date: 20191124
  Transmission Date: 20200122
  Serious: Yes (Death, Other)
  Sender: FDA-Public Use
  Company Number: NVSC2019HU020409

PATIENT
  Age: 17 Year
  Sex: Male
  Weight: 56 kg

DRUGS (3)
  1. ILARIS [Suspect]
     Active Substance: CANAKINUMAB
     Indication: CHRONIC INFANTILE NEUROLOGICAL CUTANEOUS AND ARTICULAR SYNDROME
     Dosage: 300 MG, Q4W
     Route: 058
     Dates: start: 2010
  2. ILARIS [Suspect]
     Active Substance: CANAKINUMAB
     Indication: AMYLOIDOSIS
  3. MARFARIN [Concomitant]
     Active Substance: WARFARIN
     Indication: HEART VALVE REPLACEMENT
     Dosage: 2 MG, QD
     Route: 065
     Dates: start: 2014

REACTIONS (5)
  - Death [Fatal]
  - White blood cell count increased [Unknown]
  - C-reactive protein increased [Unknown]
  - Septic shock [Unknown]
  - Osteoarthritis [Unknown]

NARRATIVE: CASE EVENT DATE: 201910
